FAERS Safety Report 22772599 (Version 3)
Quarter: 2024Q1

REPORT INFORMATION
  Report Type: Spontaneous
  Country: US (occurrence: US)
  Receive Date: 20230801
  Receipt Date: 20240117
  Transmission Date: 20240410
  Serious: Yes (Other)
  Sender: FDA-Public Use
  Company Number: US-PFIZER INC-2016246616

PATIENT
  Age: 22 Year
  Sex: Male
  Weight: 53.52 kg

DRUGS (4)
  1. BENEFIX [Suspect]
     Active Substance: COAGULATION FACTOR IX RECOMBINANT HUMAN\ISOPROPYL ALCOHOL
     Indication: Factor IX deficiency
     Dosage: 5400IU +/- 5% % DOSE: 100% # OF DOSES: 4
     Route: 042
  2. BENEFIX [Suspect]
     Active Substance: COAGULATION FACTOR IX RECOMBINANT HUMAN\ISOPROPYL ALCOHOL
     Indication: Haemorrhage
     Dosage: 5430IU +/- 10% % DOSE: 100% # OF DOSES: 3 (100 UNITS/KG)
     Route: 042
  3. BENEFIX [Suspect]
     Active Substance: COAGULATION FACTOR IX RECOMBINANT HUMAN\ISOPROPYL ALCOHOL
     Dosage: 5870IU +/- 5% # OF DOSES: 3 (100 UNITS/KG)
     Route: 042
  4. BENEFIX [Suspect]
     Active Substance: COAGULATION FACTOR IX RECOMBINANT HUMAN\ISOPROPYL ALCOHOL
     Dosage: 6400IU +/- 10% # OF DOSES: 3 (100 IU/KG DAILY X 1)
     Route: 042

REACTIONS (2)
  - Haemorrhage [Unknown]
  - Limb injury [Unknown]
